FAERS Safety Report 6528274-1 (Version None)
Quarter: 2010Q1

REPORT INFORMATION
  Report Type: 
  Country: None (occurrence: None)
  Receive Date: 20100106
  Receipt Date: 20091228
  Transmission Date: 20100710
  Serious: Yes (Hospitalization, Other)
  Sender: FDA-Public Use
  Company Number: NL-JNJFOC-20100100003

PATIENT
  Sex: Male
  Weight: 68 kg

DRUGS (4)
  1. REMINYL [Suspect]
     Indication: DEMENTIA ALZHEIMER'S TYPE
     Route: 065
  2. CARBASALATE CALCIUM [Concomitant]
  3. MELATONIN [Concomitant]
  4. SERETIDE [Concomitant]

REACTIONS (5)
  - BRADYCARDIA [None]
  - CEREBROVASCULAR ACCIDENT [None]
  - FALL [None]
  - HYPERCHOLESTEROLAEMIA [None]
  - RESPIRATORY TRACT INFECTION [None]
